FAERS Safety Report 5145316-9 (Version None)
Quarter: 2006Q4

REPORT INFORMATION
  Report Type: 
  Country: None (occurrence: None)
  Receive Date: 20061107
  Receipt Date: 20061028
  Transmission Date: 20070319
  Serious: Yes (Other)
  Sender: FDA-Public Use
  Company Number: FR-ELI_LILLY_AND_COMPANY-FR200610005306

PATIENT
  Age: 68 Year
  Sex: Male

DRUGS (3)
  1. HUMALOG MIX 75/25 [Suspect]
     Dosage: 50 IU, EACH MORNING
     Route: 058
  2. HUMALOG MIX 75/25 [Suspect]
     Dosage: 50 IU, OTHER
     Route: 058
  3. HUMALOG MIX 75/25 [Suspect]
     Dosage: 25 IU, EACH EVENING
     Route: 058

REACTIONS (2)
  - HYPOGLYCAEMIA [None]
  - MALAISE [None]
